FAERS Safety Report 10415987 (Version 1)
Quarter: 2014Q2

REPORT INFORMATION
  Report Type: Spontaneous
  Country: US (occurrence: None)
  Receive Date: 20140604
  Receipt Date: 20140604
  Transmission Date: 20141212
  Serious: Yes (Other)
  Sender: FDA-Public Use
  Company Number: 163-POMAL-14040610

PATIENT
  Age: 56 Year
  Sex: Female

DRUGS (6)
  1. POMALYST (POMALIDOMIDE) (4 MILLIGRAM, CAPSULES) [Suspect]
     Indication: PLASMA CELL MYELOMA
     Route: 048
     Dates: start: 201310
  2. ONDANSETRON HCL (ONDANSETRON HYDROCHLORIDE) [Concomitant]
  3. VALACYCLOVIR (VALACICLOVIR HYDROCHLORIDE) [Concomitant]
  4. OPIUM TINCTURE [Concomitant]
  5. TAMIFLU (OSELTAMIVIR) [Concomitant]
  6. AZITHROMYCIN [Concomitant]

REACTIONS (1)
  - Unevaluable event [None]
